FAERS Safety Report 21832040 (Version 4)
Quarter: 2023Q1

REPORT INFORMATION
  Report Type: Spontaneous
  Country: US (occurrence: US)
  Receive Date: 20230106
  Receipt Date: 20230321
  Transmission Date: 20230418
  Serious: Yes (Other)
  Sender: FDA-Public Use
  Company Number: US-BRISTOL-MYERS SQUIBB COMPANY-2023-002225

PATIENT
  Age: 56 Year
  Sex: Male
  Weight: 97.98 kg

DRUGS (3)
  1. REVLIMID [Suspect]
     Active Substance: LENALIDOMIDE
     Indication: Follicular lymphoma
     Route: 048
     Dates: start: 20211116
  2. REVLIMID [Suspect]
     Active Substance: LENALIDOMIDE
     Indication: Plasma cell myeloma
     Dosage: 21 DAYS THEN 7 DAYS OFF
     Route: 048
     Dates: start: 202112, end: 202301
  3. LEXAPRO [Concomitant]
     Active Substance: ESCITALOPRAM OXALATE
     Indication: Product used for unknown indication

REACTIONS (3)
  - Diarrhoea [Unknown]
  - Fatigue [Unknown]
  - Pneumonia [Unknown]

NARRATIVE: CASE EVENT DATE: 20221201
